FAERS Safety Report 4930868-1 (Version None)
Quarter: 2006Q1

REPORT INFORMATION
  Report Type: 
  Country: None (occurrence: None)
  Receive Date: 20060227
  Receipt Date: 20060216
  Transmission Date: 20060701
  Serious: Yes (Other)
  Sender: FDA-Public Use
  Company Number: 2006-02-1134

PATIENT
  Age: 59 Year
  Sex: Female

DRUGS (1)
  1. NASONEX [Suspect]
     Dosage: 100-200MCG, QD; NASAL SPRA
     Route: 045

REACTIONS (2)
  - FLATULENCE [None]
  - FUNGAL INFECTION [None]
